FAERS Safety Report 8396446-X (Version None)
Quarter: 2012Q2

REPORT INFORMATION
  Report Type: 
  Country: None (occurrence: None)
  Receive Date: 20120530
  Receipt Date: 20120117
  Transmission Date: 20120825
  Serious: Yes (Hospitalization)
  Sender: FDA-Public Use
  Company Number: US-ROCHE-1032013

PATIENT
  Sex: Male
  Weight: 100 kg

DRUGS (5)
  1. OXALIPLATIN [Suspect]
     Indication: COLON CANCER
     Route: 042
     Dates: start: 20070523
  2. AVASTIN [Suspect]
     Indication: COLON CANCER
     Dosage: MOST RECENT DOSE PRIOR TO SAE 19/JUN/2007
     Route: 042
     Dates: start: 20070523
  3. FLUOROURACIL [Suspect]
     Indication: COLON CANCER
     Route: 040
     Dates: start: 20070523
  4. FLUOROURACIL [Suspect]
     Dosage: 2.4 GM/M2CIV OVER 46 HOURS ON DAY 1
  5. LEUCOVORIN CALCIUM [Suspect]
     Indication: COLON CANCER
     Route: 042
     Dates: start: 20070523

REACTIONS (1)
  - HAEMORRHOIDS [None]
